FAERS Safety Report 6416765-3 (Version None)
Quarter: 2009Q4

REPORT INFORMATION
  Report Type: 
  Country: None (occurrence: None)
  Receive Date: 20091027
  Receipt Date: 20091022
  Transmission Date: 20100525
  Serious: Yes (Other)
  Sender: FDA-Public Use
  Company Number: US-GENENTECH-292265

PATIENT
  Sex: Male
  Weight: 88.707 kg

DRUGS (11)
  1. BEVACIZUMAB [Suspect]
     Indication: OESOPHAGEAL CARCINOMA
     Dosage: 15 MG/KG, UNK
     Dates: start: 20090910
  2. ERLOTINIB [Suspect]
     Indication: OESOPHAGEAL CARCINOMA
     Dosage: 100 MG, UNK
     Dates: start: 20090910
  3. CARBOPLATIN [Suspect]
     Indication: OESOPHAGEAL CARCINOMA
     Dosage: 687 MG, UNK
     Dates: start: 20090910
  4. TAXOL [Suspect]
     Indication: OESOPHAGEAL CARCINOMA
     Dosage: 428 MG, UNK
     Dates: start: 20090910
  5. FLUOROURACIL [Suspect]
     Indication: OESOPHAGEAL CARCINOMA
     Dosage: 3371 MG, UNK
     Dates: start: 20090910
  6. LEVAQUIN [Concomitant]
     Indication: DRUG USE FOR UNKNOWN INDICATION
  7. CEFEPIME [Concomitant]
     Indication: DRUG USE FOR UNKNOWN INDICATION
  8. VANCOMYCIN [Concomitant]
     Indication: DRUG USE FOR UNKNOWN INDICATION
  9. ARIXTRA [Concomitant]
     Indication: DRUG USE FOR UNKNOWN INDICATION
  10. NYSTATIN MOUTHWASH [Concomitant]
     Indication: MUCOSAL INFLAMMATION
  11. NEUPOGEN [Concomitant]
     Indication: DRUG USE FOR UNKNOWN INDICATION

REACTIONS (3)
  - DEHYDRATION [None]
  - FEBRILE NEUTROPENIA [None]
  - MUCOSAL INFLAMMATION [None]
